FAERS Safety Report 6779072-5 (Version None)
Quarter: 2010Q2

REPORT INFORMATION
  Report Type: 
  Country: None (occurrence: None)
  Receive Date: 20100618
  Receipt Date: 20100615
  Transmission Date: 20101027
  Serious: Yes (Other)
  Sender: FDA-Public Use
  Company Number: FR-PFIZER INC-2010050112

PATIENT
  Sex: Female

DRUGS (1)
  1. SALAZOPYRIN [Suspect]
     Indication: ANKYLOSING SPONDYLITIS

REACTIONS (3)
  - EYE SWELLING [None]
  - PHOTOSENSITIVITY REACTION [None]
  - SWELLING FACE [None]
